FAERS Safety Report 14714992 (Version 1)
Quarter: 2018Q2

REPORT INFORMATION
  Report Type: Spontaneous
  Country: GR (occurrence: GR)
  Receive Date: 20180404
  Receipt Date: 20180404
  Transmission Date: 20180711
  Serious: Yes (Hospitalization, Other)
  Sender: FDA-Public Use
  Company Number: GR-AMGEN-GRCSP2018042912

PATIENT
  Age: 78 Year
  Sex: Female

DRUGS (2)
  1. MIMPARA [Suspect]
     Active Substance: CINACALCET HYDROCHLORIDE
     Indication: HYPERPARATHYROIDISM PRIMARY
     Dosage: 30 MG, UNK
     Route: 065
     Dates: start: 201802
  2. MIMPARA [Suspect]
     Active Substance: CINACALCET HYDROCHLORIDE
     Dosage: 15 MG, UNK
     Route: 065
     Dates: start: 201803

REACTIONS (3)
  - Pyelonephritis [Unknown]
  - Blood calcium increased [Recovering/Resolving]
  - Blood parathyroid hormone increased [Recovering/Resolving]

NARRATIVE: CASE EVENT DATE: 20180322
